FAERS Safety Report 6305972-6 (Version None)
Quarter: 2009Q3

REPORT INFORMATION
  Report Type: 
  Country: None (occurrence: None)
  Receive Date: 20090812
  Receipt Date: 20090730
  Transmission Date: 20100115
  Serious: Yes (Hospitalization, Other)
  Sender: FDA-Public Use
  Company Number: FR-JNJFOC-20080603602

PATIENT
  Sex: Male
  Weight: 72 kg

DRUGS (13)
  1. REMICADE [Suspect]
     Dosage: 18TH INFUSION
     Route: 042
  2. REMICADE [Suspect]
     Dosage: 17TH INFUSION
     Route: 042
  3. REMICADE [Suspect]
     Dosage: 16TH INFUSION
     Route: 042
  4. REMICADE [Suspect]
     Dosage: 15TH INFUSION
     Route: 042
  5. REMICADE [Suspect]
     Indication: ANKYLOSING SPONDYLITIS
     Route: 042
  6. METOJECT [Concomitant]
     Indication: ANKYLOSING SPONDYLITIS
     Route: 058
  7. KARDEGIC [Concomitant]
  8. PLAVIX [Concomitant]
  9. TAHOR [Concomitant]
  10. EZETROL [Concomitant]
  11. PRAZEPAM [Concomitant]
  12. COVERSYL [Concomitant]
  13. MOPRAL [Concomitant]

REACTIONS (3)
  - CHEST PAIN [None]
  - MALAISE [None]
  - PHLEBITIS [None]
